FAERS Safety Report 5108355-X (Version None)
Quarter: 2006Q3

REPORT INFORMATION
  Report Type: 
  Country: None (occurrence: None)
  Receive Date: 20060731
  Receipt Date: 20060607
  Transmission Date: 20061208
  Serious: No
  Sender: FDA-Public Use
  Company Number: 2006PV015206

PATIENT
  Age: 58 Year
  Sex: Male
  Weight: 110.2241 kg

DRUGS (3)
  1. BYETTA [Suspect]
     Indication: DIABETES MELLITUS NON-INSULIN-DEPENDENT
     Dosage: 5 MCG;BID;SC
     Route: 058
     Dates: start: 20060524
  2. LANTUS [Concomitant]
  3. MICRONASE [Concomitant]

REACTIONS (3)
  - ABDOMINAL PAIN [None]
  - PRURITUS [None]
  - WEIGHT DECREASED [None]
